FAERS Safety Report 6331148-2 (Version None)
Quarter: 2009Q3

REPORT INFORMATION
  Report Type: 
  Country: None (occurrence: None)
  Receive Date: 20090827
  Receipt Date: 20090818
  Transmission Date: 20100115
  Serious: Yes (Life-Threatening, Other)
  Sender: FDA-Public Use
  Company Number: AU-PFIZER INC-2009237953

PATIENT
  Age: 57 Year

DRUGS (11)
  1. IDARUBICIN HCL [Suspect]
     Indication: ACUTE MYELOID LEUKAEMIA
     Dosage: 15 MG, DAILY
     Route: 042
     Dates: start: 20090705, end: 20090706
  2. CYTARABINE [Suspect]
     Indication: ACUTE MYELOID LEUKAEMIA
     Dosage: 5.2 G, 2X/DAY
     Route: 042
     Dates: start: 20090705
  3. ETOPOSIDE [Suspect]
     Indication: ACUTE MYELOID LEUKAEMIA
     Dosage: 130 MG, 1X/DAY
     Route: 042
     Dates: start: 20090705
  4. PEGFILGRASTIM [Suspect]
     Indication: ACUTE MYELOID LEUKAEMIA
     Dosage: 6 MG, SINGLE
     Route: 058
  5. BLINDED THERAPY [Suspect]
     Indication: MUCOSAL INFLAMMATION
     Dosage: 4.2 MG, 1X/DAY
     Route: 042
     Dates: start: 20090701
  6. ACICLOVIR [Concomitant]
     Indication: ANTIVIRAL PROPHYLAXIS
     Dosage: 200 MG, 3X/DAY
     Route: 048
     Dates: start: 20090625
  7. POSACONAZOLE [Concomitant]
     Indication: ANTIFUNGAL PROPHYLAXIS
     Dosage: 200 MG, 3X/DAY
     Route: 048
     Dates: start: 20090625
  8. SERETIDE [Concomitant]
     Indication: ASTHMA
     Dosage: 200/25 2X/DAY
     Route: 055
  9. PANTOPRAZOLE [Concomitant]
     Indication: GASTROENTERITIS
     Dosage: 40 MG, 1X/DAY
     Route: 048
     Dates: start: 20090629
  10. ALLOPURINOL [Concomitant]
     Indication: TUMOUR LYSIS SYNDROME
     Dosage: 300 MG, 1X/DAY
     Route: 048
     Dates: start: 20090629
  11. VENTOLIN [Concomitant]
     Indication: ASTHMA
     Dosage: 2 PUFFS AS NEEDED
     Route: 055

REACTIONS (2)
  - ACUTE PULMONARY OEDEMA [None]
  - SINUS TACHYCARDIA [None]
